FAERS Safety Report 8022352-6 (Version None)
Quarter: 2012Q1

REPORT INFORMATION
  Report Type: 
  Country: None (occurrence: None)
  Receive Date: 20120104
  Receipt Date: 20111229
  Transmission Date: 20120608
  Serious: Yes (Other)
  Sender: FDA-Public Use
  Company Number: US-JNJFOC-20120100586

PATIENT
  Age: 66 Year
  Sex: Male
  Weight: 81.65 kg

DRUGS (2)
  1. DESITIN MAXIMUM STRENGTH ORIGINAL PASTE [Suspect]
     Indication: DERMATITIS DIAPER
     Route: 055
     Dates: start: 20111227, end: 20111227
  2. ALBUTEROL [Concomitant]
     Indication: ASTHMA
     Route: 065

REACTIONS (2)
  - HYPERSENSITIVITY [None]
  - ASTHMA [None]
